FAERS Safety Report 16369041 (Version 13)
Quarter: 2023Q1

REPORT INFORMATION
  Report Type: Spontaneous
  Country: US (occurrence: US)
  Receive Date: 20190529
  Receipt Date: 20230320
  Transmission Date: 20230418
  Serious: Yes (Hospitalization)
  Sender: FDA-Public Use
  Company Number: US-SUNOVION-2019SUN002123

PATIENT
  Sex: Female
  Weight: 83.9 kg

DRUGS (16)
  1. LUNESTA [Suspect]
     Active Substance: ESZOPICLONE
     Indication: Insomnia
     Dosage: UNK
     Route: 048
     Dates: start: 2013
  2. LUNESTA [Suspect]
     Active Substance: ESZOPICLONE
     Indication: Sleep disorder
     Dosage: 3 MG, HS
     Route: 048
  3. LUNESTA [Suspect]
     Active Substance: ESZOPICLONE
     Indication: Rapid eye movements sleep abnormal
     Dosage: 2 MG, HS AT 8 PM
     Route: 048
     Dates: start: 2015, end: 2016
  4. LUNESTA [Suspect]
     Active Substance: ESZOPICLONE
     Dosage: 2 MG, AS NECESSARY TOOK SPORADICALLY ALTERNATING WITH THE 3 MG
     Route: 048
     Dates: start: 20190415
  5. LUNESTA [Suspect]
     Active Substance: ESZOPICLONE
     Dosage: 3 MG, HS
     Route: 048
     Dates: start: 201907, end: 20191029
  6. LUNESTA [Suspect]
     Active Substance: ESZOPICLONE
     Dosage: 1 MG
     Route: 048
  7. SEROQUEL [Suspect]
     Active Substance: QUETIAPINE FUMARATE
     Indication: Sleep disorder
     Dosage: UNK
     Route: 065
  8. SEROQUEL [Suspect]
     Active Substance: QUETIAPINE FUMARATE
     Indication: Affective disorder
  9. ESZOPICLONE [Suspect]
     Active Substance: ESZOPICLONE
     Indication: Insomnia
     Dosage: 3 MG, AS NECESSARY TOOK SPORADICALLY ALTERNATING WITH THE 2 MG
     Route: 048
     Dates: start: 20190404
  10. ESZOPICLONE [Suspect]
     Active Substance: ESZOPICLONE
     Indication: Sleep disorder
     Dosage: 2 MG, AS NECESSARY TOOK SPORADICALLY ALTERNATING WITH THE 3 MG
     Route: 048
     Dates: start: 20190415
  11. ESZOPICLONE [Suspect]
     Active Substance: ESZOPICLONE
     Dosage: 3 MG
     Route: 048
     Dates: start: 20191107
  12. EFFEXOR [Concomitant]
     Active Substance: VENLAFAXINE HYDROCHLORIDE
     Dosage: UNK
     Dates: start: 2015
  13. EFFEXOR [Concomitant]
     Active Substance: VENLAFAXINE HYDROCHLORIDE
     Dosage: UNK
  14. IPRATROPIUM BROMIDE [Concomitant]
     Active Substance: IPRATROPIUM BROMIDE
     Dosage: UNK
     Route: 055
  15. TYLENOL [Concomitant]
     Active Substance: ACETAMINOPHEN
     Indication: Sleep disorder
     Dosage: UNK
     Route: 065
  16. LEXAPRO [Concomitant]
     Active Substance: ESCITALOPRAM OXALATE
     Dosage: UNK
     Route: 065

REACTIONS (27)
  - Sleep deficit [Not Recovered/Not Resolved]
  - Therapeutic product effect decreased [Not Recovered/Not Resolved]
  - Rapid eye movements sleep abnormal [Not Recovered/Not Resolved]
  - Drug ineffective [Not Recovered/Not Resolved]
  - Stress [Unknown]
  - Feeling abnormal [Not Recovered/Not Resolved]
  - Hangover [Unknown]
  - Sleep apnoea syndrome [Unknown]
  - Condition aggravated [Unknown]
  - Poor quality sleep [Unknown]
  - Hypersomnia [Unknown]
  - Therapeutic product effect increased [Unknown]
  - Suspected counterfeit product [Unknown]
  - Insomnia [Not Recovered/Not Resolved]
  - Psychotic disorder [Not Recovered/Not Resolved]
  - Paranoia [Not Recovered/Not Resolved]
  - Middle insomnia [Not Recovered/Not Resolved]
  - Amnesia [Not Recovered/Not Resolved]
  - Injury [Unknown]
  - Nausea [Unknown]
  - Weight increased [Unknown]
  - Confusional state [Unknown]
  - Memory impairment [Not Recovered/Not Resolved]
  - Apathy [Unknown]
  - Agitation [Unknown]
  - Product dose omission issue [Unknown]
  - Inappropriate schedule of product administration [Unknown]

NARRATIVE: CASE EVENT DATE: 20150101
